FAERS Safety Report 7879756-1 (Version None)
Quarter: 2011Q4

REPORT INFORMATION
  Report Type: 
  Country: None (occurrence: None)
  Receive Date: 20111101
  Receipt Date: 20111024
  Transmission Date: 20120403
  Serious: Yes (Hospitalization)
  Sender: FDA-Public Use
  Company Number: DE-ELI_LILLY_AND_COMPANY-DE201110007581

PATIENT
  Sex: Female

DRUGS (8)
  1. PRADAXA [Concomitant]
     Dosage: 110 MG, BID
     Dates: start: 20111001
  2. METOPROLOL TARTRATE [Concomitant]
     Dosage: 200 MG, QD
     Route: 048
  3. HUMULIN N [Suspect]
     Indication: TYPE 2 DIABETES MELLITUS
     Dosage: UNK, UNKNOWN
     Route: 058
     Dates: start: 20070101
  4. DIGIMERCK [Concomitant]
     Dosage: 0.07 MG, QD
     Route: 048
     Dates: start: 20111001
  5. HUMULIN R [Suspect]
     Indication: TYPE 2 DIABETES MELLITUS
     Dosage: UNK, UNKNOWN
     Route: 058
     Dates: start: 20070101
  6. TORSEMIDE [Concomitant]
     Dosage: 5 MG, UNK
     Route: 048
     Dates: start: 20111001
  7. EXFORGE HCT [Concomitant]
     Dosage: 10/160/12.5 DAILY
     Route: 048
  8. RAMIPRIL [Concomitant]
     Dosage: 2 MG, QD
     Route: 048

REACTIONS (3)
  - BLOOD GLUCOSE INCREASED [None]
  - HOSPITALISATION [None]
  - DRUG INTERACTION [None]
